FAERS Safety Report 16202642 (Version 4)
Quarter: 2019Q3

REPORT INFORMATION
  Report Type: Spontaneous
  Country: US (occurrence: US)
  Receive Date: 20190416
  Receipt Date: 20190808
  Transmission Date: 20191004
  Serious: Yes (Other)
  Sender: FDA-Public Use
  Company Number: US-PFIZER INC-2019157814

PATIENT
  Age: 80 Year
  Sex: Male
  Weight: 65.77 kg

DRUGS (17)
  1. LYRICA [Suspect]
     Active Substance: PREGABALIN
     Indication: ARTHRITIS
  2. LYRICA [Suspect]
     Active Substance: PREGABALIN
     Indication: POLYNEUROPATHY
  3. BACLOFEN. [Concomitant]
     Active Substance: BACLOFEN
     Dosage: UNK, AS NEEDED
  4. SUPER VITAMIN C COMPLEX [Concomitant]
     Dosage: UNK, 1X/DAY
  5. PRAMIPEXOLE. [Concomitant]
     Active Substance: PRAMIPEXOLE
     Dosage: 1 MG, 3X/DAY
  6. CARBIDOPA/LEVODOPA [Concomitant]
     Dosage: CARBIDOPA 50/LEVODOPA 200, 3X/DAY
  7. SUPER B COMPL [Concomitant]
     Dosage: UNK, 1X/DAY
  8. LYRICA [Suspect]
     Active Substance: PREGABALIN
     Indication: PARKINSON^S DISEASE
     Dosage: 150 MG, 2X/DAY
     Route: 048
     Dates: start: 201812
  9. OXYBUTYNIN. [Concomitant]
     Active Substance: OXYBUTYNIN CHLORIDE
     Dosage: 5 MG, 3X/DAY
  10. LIQUID VITAMIN B12 [Concomitant]
     Dosage: UNK, 1X/DAY
  11. BABY ASPIRIN [Concomitant]
     Active Substance: ASPIRIN
     Dosage: 81 MG, 1X/DAY
  12. CAL MAG ZINC [Concomitant]
     Dosage: UNK, 1X/DAY
  13. LORAZEPAM. [Concomitant]
     Active Substance: LORAZEPAM
     Indication: ANXIETY
     Dosage: 1 MG, AS NEEDED (HE CUTS IT IN QUARTERS)
  14. LEVOTHYROXINE. [Concomitant]
     Active Substance: LEVOTHYROXINE
     Dosage: UNK, 1X/DAY
  15. TERAZOSIN [Concomitant]
     Active Substance: TERAZOSIN HYDROCHLORIDE
     Dosage: 10 MG, 1X/DAY
  16. VITAMIN D3 [Concomitant]
     Active Substance: CHOLECALCIFEROL
     Dosage: 1000, 1X/DAY
  17. LYRICA [Suspect]
     Active Substance: PREGABALIN
     Indication: NEUROPATHY PERIPHERAL

REACTIONS (1)
  - Hallucination [Recovered/Resolved]

NARRATIVE: CASE EVENT DATE: 201812
